FAERS Safety Report 10587623 (Version 1)
Quarter: 2014Q4

REPORT INFORMATION
  Report Type: Spontaneous
  Country: US (occurrence: US)
  Receive Date: 20141117
  Receipt Date: 20141117
  Transmission Date: 20150529
  Serious: No
  Sender: FDA-Public Use
  Company Number: US-B.I. PHARMACEUTICALS,INC./RIDGEFIELD-2014-BI-54599BP

PATIENT
  Age: 78 Year
  Sex: Female
  Weight: 75.74 kg

DRUGS (1)
  1. TRADJENTA [Suspect]
     Active Substance: LINAGLIPTIN
     Indication: TYPE 2 DIABETES MELLITUS
     Dosage: 5 MG
     Route: 048
     Dates: start: 20140813, end: 20141102

REACTIONS (8)
  - Pruritus [Not Recovered/Not Resolved]
  - Blister [Not Recovered/Not Resolved]
  - Dizziness [Not Recovered/Not Resolved]
  - Blood glucose increased [Recovered/Resolved]
  - Gait disturbance [Not Recovered/Not Resolved]
  - Malaise [Not Recovered/Not Resolved]
  - Blood glucose increased [Unknown]
  - Nail discolouration [Not Recovered/Not Resolved]

NARRATIVE: CASE EVENT DATE: 2014
